FAERS Safety Report 5705618-1 (Version None)
Quarter: 2008Q2

REPORT INFORMATION
  Report Type: 
  Country: None (occurrence: None)
  Receive Date: 20080411
  Receipt Date: 20080403
  Transmission Date: 20081010
  Serious: No
  Sender: FDA-Public Use
  Company Number: IDA-00032

PATIENT
  Age: 69 Year
  Sex: Male

DRUGS (13)
  1. PROPRANOLOL [Suspect]
     Indication: EXTRASYSTOLES
     Dosage: SEE IMAGE
     Route: 048
     Dates: end: 20060101
  2. PROPRANOLOL [Suspect]
     Indication: HYPERTENSION
     Dosage: SEE IMAGE
     Route: 048
     Dates: end: 20060101
  3. PROPRANOLOL [Suspect]
     Indication: EXTRASYSTOLES
     Dosage: SEE IMAGE
     Route: 048
     Dates: start: 20060101, end: 20070601
  4. PROPRANOLOL [Suspect]
     Indication: HYPERTENSION
     Dosage: SEE IMAGE
     Route: 048
     Dates: start: 20060101, end: 20070601
  5. PROPRANOLOL [Suspect]
     Indication: EXTRASYSTOLES
     Dosage: SEE IMAGE
     Route: 048
     Dates: start: 20070601, end: 20071210
  6. PROPRANOLOL [Suspect]
     Indication: HYPERTENSION
     Dosage: SEE IMAGE
     Route: 048
     Dates: start: 20070601, end: 20071210
  7. PROPRANOLOL [Suspect]
     Indication: EXTRASYSTOLES
     Dosage: SEE IMAGE
     Route: 048
     Dates: start: 19970101
  8. PROPRANOLOL [Suspect]
     Indication: HYPERTENSION
     Dosage: SEE IMAGE
     Route: 048
     Dates: start: 19970101
  9. PROPRANOLOL [Suspect]
     Indication: EXTRASYSTOLES
     Dosage: SEE IMAGE
     Route: 048
     Dates: start: 20071210
  10. PROPRANOLOL [Suspect]
     Indication: HYPERTENSION
     Dosage: SEE IMAGE
     Route: 048
     Dates: start: 20071210
  11. HYPERIUM: (RILMENIDINE) [Suspect]
     Dates: start: 20060601
  12. PRAVASTATIN [Concomitant]
  13. STABLON (TIANEPTINE) [Concomitant]

REACTIONS (9)
  - AORTIC DILATATION [None]
  - BLOOD PRESSURE SYSTOLIC INCREASED [None]
  - BREAST SWELLING [None]
  - HAEMATOCRIT DECREASED [None]
  - HAEMOGLOBIN DECREASED [None]
  - HALLUCINATION [None]
  - HEART RATE DECREASED [None]
  - SERUM FERRITIN INCREASED [None]
  - VENTRICULAR HYPERTROPHY [None]
